FAERS Safety Report 25019857 (Version 1)
Quarter: 2025Q1

REPORT INFORMATION
  Report Type: Report from Study
  Country: CN (occurrence: CN)
  Receive Date: 20250227
  Receipt Date: 20250227
  Transmission Date: 20250409
  Serious: Yes (Other)
  Sender: GILEAD
  Company Number: CN-GILEAD-2025-0704676

PATIENT
  Age: 43 Year
  Sex: Female

DRUGS (3)
  1. SACITUZUMAB GOVITECAN-HZIY [Suspect]
     Active Substance: SACITUZUMAB GOVITECAN-HZIY
     Indication: Breast cancer
     Dosage: 650 MG, Q3WK  (C1-C8 D8)
     Route: 041
     Dates: start: 20240620, end: 20250103
  2. SACITUZUMAB GOVITECAN-HZIY [Suspect]
     Active Substance: SACITUZUMAB GOVITECAN-HZIY
     Dosage: 650 MG, Q3WK (C9D1 D8)
     Route: 041
     Dates: start: 20250120
  3. SACITUZUMAB GOVITECAN-HZIY [Suspect]
     Active Substance: SACITUZUMAB GOVITECAN-HZIY
     Dosage: 650 MG, Q3WK, C9D8 D8
     Route: 041
     Dates: start: 20250204

REACTIONS (9)
  - Squamous cell carcinoma [Unknown]
  - Pulmonary mass [Unknown]
  - Post procedural inflammation [Unknown]
  - Lymphadenopathy [Unknown]
  - Abdominal lymphadenopathy [Unknown]
  - Retroperitoneal lymphadenopathy [Unknown]
  - Benign breast neoplasm [Unknown]
  - Blood bilirubin increased [Unknown]
  - Gamma-glutamyltransferase increased [Unknown]
